FAERS Safety Report 9135389 (Version 1)
Quarter: 2013Q1

REPORT INFORMATION
  Report Type: Spontaneous
  Country: US (occurrence: US)
  Receive Date: 20130304
  Receipt Date: 20130304
  Transmission Date: 20140127
  Serious: No
  Sender: FDA-Public Use
  Company Number: US-ENDO PHARMACEUTICALS INC.-ENDC20110166

PATIENT
  Age: 53 Year
  Sex: Male

DRUGS (3)
  1. ENDOCET [Suspect]
     Indication: BACK PAIN
     Dosage: 30/975 MG
     Route: 048
     Dates: start: 201104, end: 201105
  2. LIPITOR [Suspect]
     Indication: BLOOD CHOLESTEROL INCREASED
     Route: 048
     Dates: start: 1997, end: 201105
  3. PROVIGIL [Concomitant]
     Indication: SLEEP APNOEA SYNDROME
     Route: 048

REACTIONS (4)
  - Sleep apnoea syndrome [Not Recovered/Not Resolved]
  - Skin discolouration [Recovered/Resolved]
  - Hepatic enzyme increased [Recovering/Resolving]
  - Lethargy [Recovering/Resolving]
